FAERS Safety Report 12999854 (Version 1)
Quarter: 2016Q4

REPORT INFORMATION
  Report Type: Report from Study
  Country: US (occurrence: US)
  Receive Date: 20161205
  Receipt Date: 20161205
  Transmission Date: 20170207
  Serious: No
  Sender: FDA-Public Use
  Company Number: US-009507513-1611USA007762

PATIENT
  Age: 70 Year
  Sex: Male

DRUGS (11)
  1. FOLIC ACID. [Concomitant]
     Active Substance: FOLIC ACID
  2. METFORMIN [Concomitant]
     Active Substance: METFORMIN HYDROCHLORIDE
  3. KEYTRUDA [Suspect]
     Active Substance: PEMBROLIZUMAB
     Indication: MESOTHELIOMA
     Dosage: EVERY 3 WEEKS
     Route: 042
     Dates: start: 20161111
  4. PRINIVIL [Concomitant]
     Active Substance: LISINOPRIL
  5. METOPROLOL. [Concomitant]
     Active Substance: METOPROLOL
  6. ASPIRIN. [Concomitant]
     Active Substance: ASPIRIN
  7. PRAVASTATIN. [Concomitant]
     Active Substance: PRAVASTATIN
  8. GABAPENTIN. [Concomitant]
     Active Substance: GABAPENTIN
  9. BENTYL [Concomitant]
     Active Substance: DICYCLOMINE HYDROCHLORIDE
  10. INSULIN [Concomitant]
     Active Substance: INSULIN NOS
  11. ZYRTEC [Concomitant]
     Active Substance: CETIRIZINE HYDROCHLORIDE

REACTIONS (3)
  - Insomnia [Recovered/Resolved]
  - Pyrexia [Recovered/Resolved]
  - Product use issue [Unknown]

NARRATIVE: CASE EVENT DATE: 20161111
